FAERS Safety Report 25897498 (Version 2)
Quarter: 2025Q4

REPORT INFORMATION
  Report Type: Spontaneous
  Country: AU (occurrence: AU)
  Receive Date: 20251008
  Receipt Date: 20251029
  Transmission Date: 20260117
  Serious: Yes (Other)
  Sender: NOVO NORDISK
  Company Number: AU-NOVOPROD-1533132

PATIENT

DRUGS (2)
  1. WEGOVY [Suspect]
     Active Substance: SEMAGLUTIDE
     Dosage: 0.25 MG
  2. WEGOVY [Suspect]
     Active Substance: SEMAGLUTIDE
     Indication: Product used for unknown indication
     Dosage: 1.7 MG
     Dates: start: 202505

REACTIONS (4)
  - Limb injury [Unknown]
  - Mobility decreased [Unknown]
  - Sunburn [Recovered/Resolved]
  - Allodynia [Recovered/Resolved]

NARRATIVE: CASE EVENT DATE: 20250901
